FAERS Safety Report 24244917 (Version 2)
Quarter: 2024Q4

REPORT INFORMATION
  Report Type: Spontaneous
  Country: GB (occurrence: GB)
  Receive Date: 20240823
  Receipt Date: 20241119
  Transmission Date: 20250115
  Serious: Yes (Hospitalization, Other)
  Sender: BRISTOL-MYERS SQUIBB COMPANY
  Company Number: GB-BRISTOL-MYERS SQUIBB COMPANY-2024-131592

PATIENT
  Sex: Female

DRUGS (4)
  1. MAVACAMTEN [Suspect]
     Active Substance: MAVACAMTEN
     Indication: Cardiac disorder
  2. MAVACAMTEN [Suspect]
     Active Substance: MAVACAMTEN
  3. MAVACAMTEN [Suspect]
     Active Substance: MAVACAMTEN
  4. MAVACAMTEN [Suspect]
     Active Substance: MAVACAMTEN

REACTIONS (2)
  - Pancreatitis [Unknown]
  - Dyspnoea [Unknown]
